FAERS Safety Report 20378867 (Version 1)
Quarter: 2022Q1

REPORT INFORMATION
  Report Type: Spontaneous
  Country: IN (occurrence: IN)
  Receive Date: 20220126
  Receipt Date: 20220126
  Transmission Date: 20220424
  Serious: Yes (Death)
  Sender: FDA-Public Use
  Company Number: IN-PFIZER INC-2020480016

PATIENT
  Age: 43 Year
  Sex: Female

DRUGS (1)
  1. SUTENT [Suspect]
     Active Substance: SUNITINIB MALATE
     Indication: Pancreatic neuroendocrine tumour metastatic
     Dosage: 50 MG, 1X/DAY
     Route: 048
     Dates: start: 20201022

REACTIONS (1)
  - Death [Fatal]
